FAERS Safety Report 8010220-5 (Version None)
Quarter: 2011Q4

REPORT INFORMATION
  Report Type: 
  Country: None (occurrence: None)
  Receive Date: 20111228
  Receipt Date: 20111218
  Transmission Date: 20120403
  Serious: Yes (Hospitalization)
  Sender: FDA-Public Use
  Company Number: US-UCBSA-047983

PATIENT
  Age: 29 Year
  Sex: Female
  Weight: 60 kg

DRUGS (9)
  1. LAMOTRIGINE [Concomitant]
     Indication: CONVULSION
     Dosage: DAILY DOSE: 50 MG
     Route: 048
     Dates: start: 20110530
  2. DIVALPROEX SODIUM [Concomitant]
     Indication: CONVULSION
  3. CLONAZEPAM [Concomitant]
     Indication: CONVULSION
  4. INTERFERON BETA-1B [Concomitant]
     Indication: MULTIPLE SCLEROSIS
     Route: 058
  5. INTERFERON BETA-1A [Concomitant]
     Indication: MULTIPLE SCLEROSIS
     Route: 030
  6. DILANTIN [Concomitant]
     Indication: CONVULSION
     Dosage: DAILY DOSE: 600 MG
     Route: 048
     Dates: start: 20100116
  7. KEPPRA [Suspect]
     Indication: CONVULSION
     Dates: start: 20110530
  8. BACLOFEN [Concomitant]
     Indication: MULTIPLE SCLEROSIS
  9. CARBAMAZEPINE [Concomitant]
     Indication: CONVULSION

REACTIONS (1)
  - STATUS EPILEPTICUS [None]
